FAERS Safety Report 14350055 (Version 1)
Quarter: 2018Q1

REPORT INFORMATION
  Report Type: Report from Study
  Country: US (occurrence: US)
  Receive Date: 20180104
  Receipt Date: 20180104
  Transmission Date: 20180509
  Serious: Yes (Hospitalization)
  Sender: FDA-Public Use
  Company Number: US-BAYER-2017-251269

PATIENT
  Age: 62 Year
  Sex: Female

DRUGS (5)
  1. TIZANIDINE. [Concomitant]
     Active Substance: TIZANIDINE
  2. TOPIRAMATE. [Concomitant]
     Active Substance: TOPIRAMATE
  3. VITAMIN D [Concomitant]
     Active Substance: CHOLECALCIFEROL
  4. BETASERON [Suspect]
     Active Substance: INTERFERON BETA-1B
     Dosage: 8 MIU, QOD
     Dates: start: 20161215, end: 20171031
  5. IMITREX [Concomitant]
     Active Substance: SUMATRIPTAN SUCCINATE

REACTIONS (3)
  - Hypertension [Not Recovered/Not Resolved]
  - Costochondritis [Not Recovered/Not Resolved]
  - Chest pain [Not Recovered/Not Resolved]

NARRATIVE: CASE EVENT DATE: 20171028
